FAERS Safety Report 6218111-7 (Version None)
Quarter: 2009Q2

REPORT INFORMATION
  Report Type: 
  Country: None (occurrence: None)
  Receive Date: 20090608
  Receipt Date: 20090530
  Transmission Date: 20091009
  Serious: Yes (Other)
  Sender: FDA-Public Use
  Company Number: PHEH2009US05492

PATIENT
  Sex: Female

DRUGS (1)
  1. TEKTURNA HCT [Suspect]

REACTIONS (3)
  - ASTHMA [None]
  - RASH [None]
  - SKIN EXFOLIATION [None]
